FAERS Safety Report 8165542-4 (Version None)
Quarter: 2012Q1

REPORT INFORMATION
  Report Type: 
  Country: None (occurrence: None)
  Receive Date: 20120227
  Receipt Date: 20120221
  Transmission Date: 20120608
  Serious: Yes (Other)
  Sender: FDA-Public Use
  Company Number: FR-GENZYME-POMP-1001964

PATIENT
  Sex: Female
  Weight: 12.4 kg

DRUGS (1)
  1. MYOZYME [Suspect]
     Indication: GLYCOGEN STORAGE DISEASE TYPE II
     Dosage: UNK
     Route: 064

REACTIONS (2)
  - GRAND MAL CONVULSION [None]
  - EPILEPSY [None]
